FAERS Safety Report 25337242 (Version 2)
Quarter: 2025Q2

REPORT INFORMATION
  Report Type: Spontaneous
  Country: CN (occurrence: CN)
  Receive Date: 20250520
  Receipt Date: 20250626
  Transmission Date: 20250717
  Serious: Yes (Hospitalization)
  Sender: EISAI
  Company Number: CN-Eisai-EC-2025-189209

PATIENT
  Age: 59 Year
  Sex: Male

DRUGS (3)
  1. LENVATINIB [Suspect]
     Active Substance: LENVATINIB
     Indication: Hepatocellular carcinoma
  2. ASPIRIN [Interacting]
     Active Substance: ASPIRIN
     Indication: Cerebrovascular accident
  3. TRAMADOL [Concomitant]
     Active Substance: TRAMADOL
     Indication: Cancer pain

REACTIONS (3)
  - Aortic dissection [Unknown]
  - Drug interaction [Unknown]
  - Hypertension [Recovered/Resolved]
